FAERS Safety Report 17984163 (Version 1)
Quarter: 2020Q3

REPORT INFORMATION
  Report Type: Spontaneous
  Country: US (occurrence: US)
  Receive Date: 20200706
  Receipt Date: 20200706
  Transmission Date: 20201103
  Serious: Yes (Other)
  Sender: FDA-Public Use
  Company Number: US-RISING PHARMA HOLDINGS, INC.-2020RIS000027

PATIENT
  Age: 62 Year
  Sex: Female

DRUGS (2)
  1. CLOBETASOL PROPIONATE. [Suspect]
     Active Substance: CLOBETASOL PROPIONATE
     Indication: DERMATOSIS
     Dosage: UNK, QD
     Route: 061
  2. TACROLIMUS. [Suspect]
     Active Substance: TACROLIMUS
     Indication: DERMATOSIS
     Dosage: UNK, QD
     Route: 061

REACTIONS (1)
  - Herpes zoster reactivation [Recovered/Resolved]
